FAERS Safety Report 17083762 (Version 1)
Quarter: 2019Q4

REPORT INFORMATION
  Report Type: Spontaneous
  Country: CH (occurrence: CH)
  Receive Date: 20191127
  Receipt Date: 20191127
  Transmission Date: 20200122
  Serious: Yes (Hospitalization, Other)
  Sender: FDA-Public Use
  Company Number: CH-009507513-1911CHE009361

PATIENT
  Age: 57 Year
  Sex: Female
  Weight: 72 kg

DRUGS (6)
  1. KEYTRUDA [Suspect]
     Active Substance: PEMBROLIZUMAB
     Dosage: 200 MILLIGRAM, Q3W
     Route: 042
     Dates: start: 20190416, end: 20190925
  2. ISCADOR [Suspect]
     Active Substance: VISCUM ALBUM FRUITING TOP
     Dosage: 1 DOSAGE FORM, EVERY 2 DAYS
     Route: 058
  3. PANTOPRAZOLE [Concomitant]
     Active Substance: PANTOPRAZOLE
     Dosage: 40 MILLIGRAM, Q24H
     Route: 048
  4. SPIRICORT [Concomitant]
     Active Substance: PREDNISOLONE
     Dosage: 70 MILLIGRAM, Q24H
     Route: 048
     Dates: start: 20190925, end: 20191010
  5. PRADIF T [Concomitant]
     Active Substance: TAMSULOSIN HYDROCHLORIDE
     Dosage: 0.4 MILLIGRAM, Q24H
     Route: 048
  6. DAFALGAN [Concomitant]
     Active Substance: ACETAMINOPHEN
     Dosage: 1000 MILLIGRAM, Q24H
     Route: 048

REACTIONS (1)
  - Paraparesis [Not Recovered/Not Resolved]

NARRATIVE: CASE EVENT DATE: 201908
